FAERS Safety Report 6342813-5 (Version None)
Quarter: 2009Q3

REPORT INFORMATION
  Report Type: 
  Country: None (occurrence: None)
  Receive Date: 20090908
  Receipt Date: 20090825
  Transmission Date: 20100115
  Serious: Yes (Hospitalization)
  Sender: FDA-Public Use
  Company Number: DE-ROCHE-651185

PATIENT
  Age: 34 Year
  Sex: Male

DRUGS (10)
  1. MYCOPHENOLATE MOFETIL [Suspect]
     Route: 065
     Dates: start: 20080401, end: 20080423
  2. TACROLIMUS [Concomitant]
     Dates: start: 20080416
  3. PREDNISONE TAB [Concomitant]
     Dosage: REPORTED DRUG:PREDNISON
     Dates: start: 20080418, end: 20080504
  4. METOPROLOL [Concomitant]
     Dates: start: 20080401
  5. COTRIM [Concomitant]
     Dosage: TOTAL DAILY DOSE REPORTED: 1/2 TBL
     Dates: start: 20080401
  6. LERCANIDIPIN [Concomitant]
     Dates: start: 20080401
  7. FUROSEMID [Concomitant]
     Dosage: DRUG REPORTED:FURSOSEMID
     Dates: start: 20080401
  8. DOXAZOSIN [Concomitant]
     Dates: start: 20080401, end: 20080502
  9. CLONIDINE [Concomitant]
     Dates: start: 20080416, end: 20080502
  10. CIPROFLAXACIN [Concomitant]
     Dates: start: 20080420

REACTIONS (1)
  - URETERIC ANASTOMOSIS COMPLICATION [None]
